FAERS Safety Report 15348913 (Version 2)
Quarter: 2018Q4

REPORT INFORMATION
  Report Type: Spontaneous
  Country: DE (occurrence: DE)
  Receive Date: 20180904
  Receipt Date: 20181008
  Transmission Date: 20190204
  Serious: No
  Sender: FDA-Public Use
  Company Number: DE-JNJFOC-20180837034

PATIENT
  Age: 37 Year
  Sex: Female
  Weight: 85 kg

DRUGS (1)
  1. XEPLION [Suspect]
     Active Substance: PALIPERIDONE PALMITATE
     Indication: MENTAL DISORDER
     Dosage: 75/50/25
     Route: 030
     Dates: start: 20161201

REACTIONS (26)
  - Nausea [Unknown]
  - Disturbance in attention [Unknown]
  - Dysgeusia [Unknown]
  - Vomiting [Unknown]
  - Amenorrhoea [Unknown]
  - Hypoaesthesia [Unknown]
  - Asthenia [Unknown]
  - Libido decreased [Unknown]
  - Somnolence [Unknown]
  - Weight increased [Unknown]
  - Sedation [Unknown]
  - Increased appetite [Unknown]
  - Restlessness [Unknown]
  - Vision blurred [Unknown]
  - Dry eye [Unknown]
  - Depression [Unknown]
  - Sleep disorder [Unknown]
  - Fatigue [Unknown]
  - Anxiety [Unknown]
  - Parkinsonism [Unknown]
  - Waist circumference increased [Unknown]
  - Movement disorder [Unknown]
  - Dizziness postural [Unknown]
  - Constipation [Unknown]
  - Dizziness [Unknown]
  - Dysphagia [Unknown]
